FAERS Safety Report 8156004-9 (Version None)
Quarter: 2012Q1

REPORT INFORMATION
  Report Type: 
  Country: None (occurrence: None)
  Receive Date: 20120222
  Receipt Date: 20120216
  Transmission Date: 20120608
  Serious: No
  Sender: FDA-Public Use
  Company Number: FR-ASTELLAS-2011EU006533

PATIENT
  Sex: Female

DRUGS (3)
  1. TACROLIMUS [Suspect]
     Dosage: UNK
     Route: 048
  2. ATORVASTATIN [Suspect]
     Dosage: UNK
     Route: 065
  3. CELLCEPT [Suspect]
     Indication: RENAL TRANSPLANT
     Dosage: UNK
     Route: 065

REACTIONS (1)
  - NO ADVERSE EVENT [None]
